FAERS Safety Report 6301077-9 (Version None)
Quarter: 2009Q3

REPORT INFORMATION
  Report Type: 
  Country: None (occurrence: None)
  Receive Date: 20090807
  Receipt Date: 20090805
  Transmission Date: 20100115
  Serious: Yes (Life-Threatening, Hospitalization)
  Sender: FDA-Public Use
  Company Number: US-ASTRAZENECA-2009UW19011

PATIENT
  Age: 53 Year
  Sex: Female

DRUGS (12)
  1. CRESTOR [Suspect]
     Indication: HYPERLIPIDAEMIA
     Route: 048
  2. CRESTOR [Suspect]
     Route: 048
  3. BENICAR HCT [Suspect]
     Dosage: 40/25
  4. ALEVE [Suspect]
  5. METOPROLOL TARTRATE [Concomitant]
     Indication: HYPERTENSION
  6. METFORMIN [Concomitant]
     Indication: DIABETES MELLITUS
  7. ASPIRIN [Concomitant]
     Indication: CARDIAC DISORDER
  8. SPIRONOLACTONE [Concomitant]
     Indication: CARDIAC DISORDER
  9. SPIRONOLACTONE [Concomitant]
     Indication: HYPERTENSION
  10. PREMPRO [Concomitant]
     Indication: MENOPAUSE
  11. FLUTICASONE [Concomitant]
     Route: 045
  12. ZYRTEC [Concomitant]

REACTIONS (1)
  - ANAPHYLACTIC REACTION [None]
